FAERS Safety Report 8364559-4 (Version None)
Quarter: 2012Q2

REPORT INFORMATION
  Report Type: 
  Country: None (occurrence: None)
  Receive Date: 20120516
  Receipt Date: 20120507
  Transmission Date: 20120825
  Serious: Yes (Hospitalization, Other)
  Sender: FDA-Public Use
  Company Number: US-BAYER-2012-040014

PATIENT
  Age: 27 Year
  Sex: Female

DRUGS (20)
  1. COPAXONE [Concomitant]
  2. WELLBUTRIN SR [Concomitant]
     Dosage: 150 MG, BID
     Route: 048
  3. OXYTROL [Concomitant]
     Dosage: UNK UNK, BIW
  4. ACIDOPHILUS [Concomitant]
  5. TPN [Concomitant]
  6. VITAMIN B-12 [Concomitant]
  7. YASMIN [Suspect]
     Dosage: UNK
     Dates: start: 20030801, end: 20060401
  8. FLEXERIL [Concomitant]
     Dosage: 10 MG, 1 TABLET TID
  9. GET REGULAR TEA [Concomitant]
  10. SENOKOT [Concomitant]
     Dosage: UNK UNK, PRN
  11. BUSPAR [Concomitant]
     Dosage: 10 MG, UNK
     Dates: start: 20060112
  12. VICODIN [Concomitant]
     Dosage: 5/500
  13. IBUPROFEN (ADVIL) [Concomitant]
  14. AMBIEN [Concomitant]
     Dosage: 10 MG, UNK
     Dates: start: 20060118
  15. FLOMAX [Concomitant]
     Dosage: 0.4 MG, UNK
     Dates: start: 20060118
  16. SOLU-MEDROL [Concomitant]
     Route: 042
  17. REBIF [Concomitant]
     Dosage: 44 MCG/ TUESDAY, THURSDAY AND SUNDAY
     Route: 058
  18. TARAXACUM OFFICINALE [Concomitant]
  19. DITROPAN [Concomitant]
     Dosage: 5 MG, 1 TABLET, TID
     Dates: start: 20060118
  20. ATIVAN [Concomitant]
     Dosage: 1 MG, PRN
     Route: 048
     Dates: start: 20060130

REACTIONS (7)
  - INJURY [None]
  - EMOTIONAL DISTRESS [None]
  - ANXIETY [None]
  - PAIN [None]
  - GENERAL PHYSICAL HEALTH DETERIORATION [None]
  - DEEP VEIN THROMBOSIS [None]
  - PULMONARY EMBOLISM [None]
